FAERS Safety Report 6406231-3 (Version None)
Quarter: 2009Q4

REPORT INFORMATION
  Report Type: 
  Country: None (occurrence: None)
  Receive Date: 20091014
  Receipt Date: 20090929
  Transmission Date: 20100525
  Serious: Yes (Life-Threatening, Hospitalization, Other)
  Sender: FDA-Public Use
  Company Number: AMAG200900019

PATIENT
  Age: 38 Year
  Sex: Female
  Weight: 77.1 kg

DRUGS (21)
  1. FERAHEME [Suspect]
     Indication: RENAL FAILURE CHRONIC
     Dosage: 510 MG, SINGLE, INTRAVENOUS
     Route: 042
     Dates: start: 20090929, end: 20090929
  2. EPINEPHRINE [Suspect]
     Dosage: 0.5 MG, SINGLE, INTRAMUSCULAR
     Route: 030
     Dates: start: 20090929, end: 20090929
  3. ADVAIR (FLUTICASONE PRIOPIONATE, SALMETEROL XINAFOATE) [Concomitant]
  4. ALBUTEROL (SALBUTAMOL SULFATE) [Concomitant]
  5. ALPRAZOLAM [Concomitant]
  6. ARANESP [Concomitant]
  7. CLEOCIN T [Concomitant]
  8. DIAZEPAM [Concomitant]
  9. INSPRA [Concomitant]
  10. LASIX [Concomitant]
  11. MIDRIN (DICHLORALPHENAZONE, ISOMETHEPTENE MUCATE, PARACETAMOL) [Concomitant]
  12. ONDANSETRON [Concomitant]
  13. PATADAY (OLOPATADINE HYDROCHLORIDE) [Concomitant]
  14. PROTONIX (PANTROPRAZOLE SODIUM) [Concomitant]
  15. SERTRALINE HCL [Concomitant]
  16. TRAMADOL HCL [Concomitant]
  17. EPINEPHRINE (EPINEPHRINE BITARTRATE) [Concomitant]
  18. VENTOLIN (BECLOMETASONE DIPROPIONATE, SALBUAMOL) [Concomitant]
  19. VERAMYST (FLUTICASONE FUROATE) [Concomitant]
  20. VERAPAMIL [Concomitant]
  21. LORATADINE [Concomitant]

REACTIONS (6)
  - ANAPHYLACTIC REACTION [None]
  - DYSPNOEA [None]
  - HYPERTENSION [None]
  - INFUSION SITE EXTRAVASATION [None]
  - INFUSION SITE URTICARIA [None]
  - PALLOR [None]
